FAERS Safety Report 5579514-7 (Version None)
Quarter: 2007Q4

REPORT INFORMATION
  Report Type: 
  Country: None (occurrence: None)
  Receive Date: 20071130
  Receipt Date: 20070708
  Transmission Date: 20080405
  Serious: No
  Sender: FDA-Public Use
  Company Number: US200707001846

PATIENT
  Age: 57 Year
  Sex: Female

DRUGS (20)
  1. BYETTA [Suspect]
     Indication: TYPE 2 DIABETES MELLITUS
     Dosage: 5 UG, 2/D, SUBCUTANEOUS
     Route: 058
     Dates: start: 20070704
  2. CYMBALTA [Concomitant]
  3. NOVOLOG [Concomitant]
  4. NITROGLYCERIN [Concomitant]
  5. POTASSIUM                    (POTASSIUM) [Concomitant]
  6. TRICOR [Concomitant]
  7. LASIX [Concomitant]
  8. SYNTHROID [Concomitant]
  9. NORVASC [Concomitant]
  10. COZAAR [Concomitant]
  11. OMACOR [Concomitant]
  12. METFORMIN HCL [Concomitant]
  13. CALCIUM              (CALCIUM) [Concomitant]
  14. MUCINEX [Concomitant]
  15. TUSSIONEX [Concomitant]
  16. TOPROL-XL [Concomitant]
  17. PRILOSEC [Concomitant]
  18. NIASPAN [Concomitant]
  19. REGLAN [Concomitant]
  20. ASPIRIN [Concomitant]

REACTIONS (9)
  - ASTHENIA [None]
  - BLOOD GLUCOSE DECREASED [None]
  - COLD SWEAT [None]
  - COUGH [None]
  - DYSPNOEA [None]
  - LETHARGY [None]
  - NAUSEA [None]
  - PRESYNCOPE [None]
  - VOMITING [None]
